FAERS Safety Report 8511153-8 (Version None)
Quarter: 2012Q2

REPORT INFORMATION
  Report Type: 
  Country: None (occurrence: None)
  Receive Date: 20120629
  Receipt Date: 20120620
  Transmission Date: 20120825
  Serious: Yes (Hospitalization)
  Sender: FDA-Public Use
  Company Number: 2012SP034511

PATIENT
  Age: 33 Year
  Sex: Female

DRUGS (1)
  1. NEXPLANON (ETONOGESTREL / 01502301/) [Suspect]
     Indication: PRODUCT USED FOR UNKNOWN INDICATION
     Dosage: 1 DF
     Dates: start: 20120430

REACTIONS (5)
  - CONSTIPATION [None]
  - WEIGHT DECREASED [None]
  - PNEUMONIA [None]
  - DECREASED APPETITE [None]
  - PAIN IN EXTREMITY [None]
